FAERS Safety Report 7052477-3 (Version None)
Quarter: 2010Q4

REPORT INFORMATION
  Report Type: 
  Country: None (occurrence: None)
  Receive Date: 20101014
  Receipt Date: 20100929
  Transmission Date: 20110411
  Serious: Yes (Other)
  Sender: FDA-Public Use
  Company Number: US-1183587

PATIENT
  Age: 83 Year
  Sex: Female

DRUGS (5)
  1. VIGAMOX [Suspect]
     Indication: CATARACT OPERATION
     Dosage: OPHTHALMIC
     Route: 047
  2. METOPROLOL [Concomitant]
  3. NEXIUM [Concomitant]
  4. GABAPENTIN [Concomitant]
  5. LORATADINE [Concomitant]

REACTIONS (4)
  - BLINDNESS UNILATERAL [None]
  - HYPOPYON [None]
  - VITREOUS DISORDER [None]
  - VITREOUS HAEMORRHAGE [None]
